APPROVED DRUG PRODUCT: PRALATREXATE
Active Ingredient: PRALATREXATE
Strength: 20MG/ML (20MG/ML)
Dosage Form/Route: SOLUTION;INTRAVENOUS
Application: A206183 | Product #001 | TE Code: AP
Applicant: DR REDDYS LABORATORIES LTD
Approved: Mar 10, 2025 | RLD: No | RS: No | Type: RX